FAERS Safety Report 7871493-2 (Version None)
Quarter: 2011Q4

REPORT INFORMATION
  Report Type: 
  Country: None (occurrence: None)
  Receive Date: 20111029
  Receipt Date: 20110303
  Transmission Date: 20120403
  Serious: No
  Sender: FDA-Public Use
  Company Number: US-AMGEN-USASP2011012173

PATIENT
  Sex: Female

DRUGS (1)
  1. ENBREL [Suspect]
     Indication: RHEUMATOID ARTHRITIS
     Dosage: 50 MG, QWK
     Dates: start: 20041201, end: 20100101

REACTIONS (9)
  - SINUS DISORDER [None]
  - BLOOD PRESSURE INCREASED [None]
  - FEELING COLD [None]
  - THERAPEUTIC RESPONSE DECREASED [None]
  - PYREXIA [None]
  - BACK PAIN [None]
  - RHEUMATOID ARTHRITIS [None]
  - DYSPNOEA [None]
  - MASS [None]
